FAERS Safety Report 9346978 (Version 2)
Quarter: 2013Q3

REPORT INFORMATION
  Report Type: Spontaneous
  Country: DK (occurrence: DK)
  Receive Date: 20130613
  Receipt Date: 20130703
  Transmission Date: 20140515
  Serious: Yes (Hospitalization, Other)
  Sender: FDA-Public Use
  Company Number: DK-TEVA-410822ISR

PATIENT
  Age: 60 Year
  Sex: Male

DRUGS (7)
  1. LOSARTAN [Suspect]
     Indication: HYPERTENSION
     Dosage: 100 MILLIGRAM DAILY; IN MORNING
     Dates: end: 20130406
  2. EXFORGE HCT [Suspect]
     Indication: HYPERTENSION
     Dosage: 1 DOSAGE FORMS DAILY; 1 DOSAGE FORM: 160MG VALSARTAN, 10MG AMLODIPINE, 12.5MG HYDROCHLOROTHIAZIDE
     Dates: start: 20130406
  3. OTRIVIN [Interacting]
     Indication: NASAL CONGESTION
  4. SIMVASTATIN SANDOZ [Suspect]
     Indication: HYPERCHOLESTEROLAEMIA
     Dosage: 20 MILLIGRAM DAILY; IN THE EVENING
  5. LOPRESOR [Interacting]
     Indication: HYPERTENSION
     Dosage: 75 MILLIGRAM DAILY; IN THE EVENING
     Dates: start: 2008
  6. LOPRESOR [Interacting]
     Dosage: 100 MILLIGRAM DAILY; IN THE EVENING
     Dates: start: 20130406
  7. ASPIRIN PROTECT [Concomitant]
     Dates: start: 201304

REACTIONS (20)
  - Epistaxis [Unknown]
  - Visual impairment [Unknown]
  - Disturbance in attention [Unknown]
  - Dizziness [Unknown]
  - Fatigue [Unknown]
  - Depression [Unknown]
  - Discomfort [Unknown]
  - Drug effect decreased [Unknown]
  - Hypertension [Recovering/Resolving]
  - Presyncope [Unknown]
  - Headache [Unknown]
  - Chest pain [Unknown]
  - Nausea [Unknown]
  - Pain in extremity [Unknown]
  - Myalgia [Not Recovered/Not Resolved]
  - Palpitations [Unknown]
  - Hyperhidrosis [Unknown]
  - Drug interaction [Unknown]
  - Peripheral coldness [Unknown]
  - Nasopharyngitis [Unknown]
